FAERS Safety Report 19018524 (Version 1)
Quarter: 2021Q1

REPORT INFORMATION
  Report Type: Spontaneous
  Country: FR (occurrence: FR)
  Receive Date: 20210317
  Receipt Date: 20210317
  Transmission Date: 20210420
  Serious: Yes (Other)
  Sender: FDA-Public Use
  Company Number: FR-AUROBINDO-AUR-APL-2021-010389

PATIENT
  Age: 27 Year
  Sex: Female
  Weight: 55 kg

DRUGS (2)
  1. AZITHROMYCIN ARROW FILM?COATED TABLETS 250MG [Suspect]
     Active Substance: AZITHROMYCIN
     Indication: GENITOURINARY CHLAMYDIA INFECTION
     Dosage: 4 DOSAGE FORM (1 TOTAL)
     Route: 048
     Dates: start: 20201102, end: 20201102
  2. ROCEPHINE [Suspect]
     Active Substance: CEFTRIAXONE SODIUM
     Indication: GONOCOCCAL INFECTION
     Dosage: 1 DOSAGE FORM (1 TOTAL)
     Route: 030
     Dates: start: 20201102, end: 20201102

REACTIONS (5)
  - Malaise [Recovered/Resolved]
  - Abdominal pain [Recovered/Resolved]
  - Nausea [Recovered/Resolved]
  - Hyperhidrosis [Recovered/Resolved]
  - Diarrhoea [Recovered/Resolved]

NARRATIVE: CASE EVENT DATE: 20201102
